FAERS Safety Report 14745809 (Version 4)
Quarter: 2019Q2

REPORT INFORMATION
  Report Type: Spontaneous
  Country: US (occurrence: US)
  Receive Date: 20180411
  Receipt Date: 20190607
  Transmission Date: 20190711
  Serious: Yes (Other)
  Sender: FDA-Public Use
  Company Number: PHEH2018US012372

PATIENT
  Sex: Female

DRUGS (1)
  1. KISQALI [Suspect]
     Active Substance: RIBOCICLIB
     Indication: PRODUCT USED FOR UNKNOWN INDICATION
     Dosage: UNK
     Route: 048

REACTIONS (12)
  - Abdominal discomfort [Unknown]
  - Feeling abnormal [Unknown]
  - Vomiting [Unknown]
  - Constipation [Unknown]
  - Exophthalmos [Recovering/Resolving]
  - Diarrhoea [Unknown]
  - Fatigue [Not Recovered/Not Resolved]
  - Hypertension [Unknown]
  - Lacrimation increased [Recovering/Resolving]
  - Tumour marker increased [Unknown]
  - Nasopharyngitis [Unknown]
  - Insomnia [Unknown]
